FAERS Safety Report 21380625 (Version 1)
Quarter: 2022Q3

REPORT INFORMATION
  Report Type: Report from Study
  Country: CO (occurrence: CO)
  Receive Date: 20220927
  Receipt Date: 20220927
  Transmission Date: 20221027
  Serious: Yes (Hospitalization)
  Sender: FDA-Public Use
  Company Number: CO-BAYER-2022A130848

PATIENT
  Age: 65 Year
  Sex: Female

DRUGS (5)
  1. ADEMPAS [Suspect]
     Active Substance: RIOCIGUAT
     Indication: Pulmonary arterial hypertension
     Dosage: 2.5 MG, TID
  2. ADEMPAS [Suspect]
     Active Substance: RIOCIGUAT
     Indication: Pulmonary arterial hypertension
     Dosage: UNK
  3. BOSENTAN [Concomitant]
     Active Substance: BOSENTAN
  4. CARVEDILOL [Concomitant]
     Active Substance: CARVEDILOL
  5. FUROSEMIDE [Concomitant]
     Active Substance: FUROSEMIDE

REACTIONS (5)
  - Gait disturbance [Not Recovered/Not Resolved]
  - Epistaxis [Not Recovered/Not Resolved]
  - Incorrect product administration duration [Unknown]
  - Haemoglobin decreased [Not Recovered/Not Resolved]
  - Pharmacophobia [Not Recovered/Not Resolved]

NARRATIVE: CASE EVENT DATE: 20220916
